FAERS Safety Report 5819966-8 (Version None)
Quarter: 2008Q3

REPORT INFORMATION
  Report Type: 
  Country: None (occurrence: None)
  Receive Date: 20080721
  Receipt Date: 20080707
  Transmission Date: 20090109
  Serious: Yes (Life-Threatening)
  Sender: FDA-Public Use
  Company Number: 2008AL004469

PATIENT
  Age: 75 Year
  Sex: Female
  Weight: 90.7194 kg

DRUGS (7)
  1. DIGOXIN [Suspect]
     Indication: ATRIAL FIBRILLATION
     Dosage: 0.25MG DAILY PO
     Route: 048
  2. SYNTHROID [Concomitant]
  3. ATEXOR [Concomitant]
  4. TOPROL-XL [Concomitant]
  5. AVALIDE [Concomitant]
  6. UNSPECIFIED ALLERGY PILL [Concomitant]
  7. ALEVE [Concomitant]

REACTIONS (1)
  - CARDIAC DISORDER [None]
